FAERS Safety Report 4536774-9 (Version None)
Quarter: 2004Q4

REPORT INFORMATION
  Report Type: 
  Country: None (occurrence: None)
  Receive Date: 20041223
  Receipt Date: 20041215
  Transmission Date: 20050328
  Serious: Yes (Hospitalization)
  Sender: FDA-Public Use
  Company Number: FR-ROCHE-389795

PATIENT
  Sex: Male

DRUGS (1)
  1. PEGASYS [Suspect]
     Indication: HEPATITIS C
     Dosage: FORMULATION REPORTED AS INJECTABLE SOLUTION.
     Route: 058

REACTIONS (4)
  - BACK PAIN [None]
  - HAEMOLYTIC ANAEMIA [None]
  - HAEMORRHAGE [None]
  - THROMBOTIC THROMBOCYTOPENIC PURPURA [None]
